FAERS Safety Report 9395651 (Version 1)
Quarter: 2013Q3

REPORT INFORMATION
  Report Type: Spontaneous
  Country: ES (occurrence: ES)
  Receive Date: 20130711
  Receipt Date: 20130711
  Transmission Date: 20140515
  Serious: Yes (Other)
  Sender: FDA-Public Use
  Company Number: ES-ROXANE LABORATORIES, INC.-2013-RO-01113RO

PATIENT
  Age: 38 Year
  Sex: Male

DRUGS (3)
  1. MYCOPHENOLATE MOFETIL [Suspect]
     Indication: RENAL TRANSPLANT
  2. TACROLIMUS [Suspect]
     Indication: RENAL TRANSPLANT
  3. CIDOFOVIR [Suspect]
     Indication: POLYOMAVIRUS-ASSOCIATED NEPHROPATHY

REACTIONS (2)
  - Bladder transitional cell carcinoma [Recovered/Resolved]
  - Polyomavirus-associated nephropathy [Recovered/Resolved]
